FAERS Safety Report 7806559-6 (Version None)
Quarter: 2011Q4

REPORT INFORMATION
  Report Type: 
  Country: None (occurrence: None)
  Receive Date: 20111005
  Receipt Date: 20110914
  Transmission Date: 20120403
  Serious: Yes (Other)
  Sender: FDA-Public Use
  Company Number: DSA_47697_2011

PATIENT
  Age: 61 Year
  Sex: Male
  Weight: 105.2 kg

DRUGS (12)
  1. ATORVASTATIN [Suspect]
     Indication: SUPRAVENTRICULAR TACHYCARDIA
     Dosage: (40 MG DAILY ORAL)
     Route: 048
  2. ATORVASTATIN [Suspect]
     Indication: CARDIAC FIBRILLATION
     Dosage: (40 MG DAILY ORAL)
     Route: 048
  3. SIMVASTATIN [Suspect]
     Indication: ATRIAL FIBRILLATION
     Dosage: *80 MG DAILY ORAL)
     Route: 048
  4. SIMVASTATIN [Suspect]
     Indication: SUPRAVENTRICULAR TACHYCARDIA
     Dosage: *80 MG DAILY ORAL)
     Route: 048
  5. CITALOPRAM HYDROBROMIDE [Suspect]
     Indication: PRODUCT USED FOR UNKNOWN INDICATION
     Dosage: (10 MG DAILY ORAL)
     Route: 048
  6. ASPIRIN [Concomitant]
  7. EZETIMIBE [Concomitant]
  8. ATENOLOL [Concomitant]
  9. TESTOSTERONE [Concomitant]
  10. DILTIAZEM HCL [Suspect]
     Indication: SUPRAVENTRICULAR TACHYCARDIA
     Dosage: (240 MG DAILY ORAL)
     Route: 048
  11. DILTIAZEM HCL [Suspect]
     Indication: ATRIAL FIBRILLATION
     Dosage: (240 MG DAILY ORAL)
     Route: 048
  12. PANTOPRAZOLE [Concomitant]

REACTIONS (8)
  - HICCUPS [None]
  - DRUG INTERACTION [None]
  - EXERCISE TOLERANCE DECREASED [None]
  - MYOCLONUS [None]
  - ELECTROENCEPHALOGRAM ABNORMAL [None]
  - SENSORY DISTURBANCE [None]
  - DYSKINESIA [None]
  - ARRHYTHMIA [None]
